FAERS Safety Report 5307017-3 (Version None)
Quarter: 2007Q2

REPORT INFORMATION
  Report Type: 
  Country: None (occurrence: None)
  Receive Date: 20070419
  Receipt Date: 20070410
  Transmission Date: 20071010
  Serious: Yes (Hospitalization)
  Sender: FDA-Public Use
  Company Number: 2006-146315-NL

PATIENT
  Age: 27 Year
  Sex: Female

DRUGS (4)
  1. CHORIONIC GONADOTROHIN [Suspect]
     Indication: OVULATION INDUCTION
     Dosage: 1000 IU ONCE , SUBCUTANEOUS
     Route: 058
     Dates: start: 20060619
  2. UROFOLLITROPIN [Concomitant]
  3. NAFARELIN ACETATE [Concomitant]
  4. FOLIC ACID [Concomitant]

REACTIONS (5)
  - FEELING HOT [None]
  - HYPERSENSITIVITY [None]
  - HYPERVENTILATION [None]
  - HYPOKALAEMIA [None]
  - TACHYCARDIA [None]
